FAERS Safety Report 5332970-1 (Version None)
Quarter: 2007Q2

REPORT INFORMATION
  Report Type: 
  Country: None (occurrence: None)
  Receive Date: 20070306
  Receipt Date: 20060605
  Transmission Date: 20071010
  Serious: Yes (Other)
  Sender: FDA-Public Use
  Company Number: A03200603710

PATIENT
  Age: 54 Year
  Sex: Male

DRUGS (1)
  1. PLAVIX [Suspect]
     Indication: CARDIAC DISORDER
     Dosage: 75  MG QD  - ORAL
     Route: 048
     Dates: start: 20050101, end: 20060101

REACTIONS (3)
  - OCULAR DISCOMFORT [None]
  - RETINAL HAEMORRHAGE [None]
  - VISUAL DISTURBANCE [None]
